FAERS Safety Report 15236852 (Version 1)
Quarter: 2018Q3

REPORT INFORMATION
  Report Type: Spontaneous
  Country: US (occurrence: US)
  Receive Date: 20180803
  Receipt Date: 20180803
  Transmission Date: 20181010
  Serious: No
  Sender: FDA-Public Use
  Company Number: US-SA-2018SA194047

PATIENT
  Sex: Male

DRUGS (3)
  1. ZANTAC 75 [Suspect]
     Active Substance: RANITIDINE HYDROCHLORIDE
     Dosage: UNK MG
  2. PSEUDOEPHEDRINE HYDROCHLORIDE. [Suspect]
     Active Substance: PSEUDOEPHEDRINE HYDROCHLORIDE
  3. ZANTAC [Suspect]
     Active Substance: RANITIDINE HYDROCHLORIDE

REACTIONS (1)
  - Laboratory test abnormal [Unknown]
